FAERS Safety Report 20355144 (Version 15)
Quarter: 2024Q3

REPORT INFORMATION
  Report Type: Spontaneous
  Country: FR (occurrence: FR)
  Receive Date: 20220120
  Receipt Date: 20240927
  Transmission Date: 20241017
  Serious: Yes (Hospitalization, Other)
  Sender: GLAXOSMITHKLINE
  Company Number: None

PATIENT

DRUGS (7)
  1. SUMATRIPTAN SUCCINATE [Suspect]
     Active Substance: SUMATRIPTAN SUCCINATE
     Indication: Cluster headache
     Dosage: 6 MG (ABOUT 150 INJECTIONS OVER ABOUT 4 MONTHS)
     Route: 058
     Dates: start: 20170801, end: 20171129
  2. SUMATRIPTAN SUCCINATE [Suspect]
     Active Substance: SUMATRIPTAN SUCCINATE
     Dosage: UNK, ONE DOSE
     Dates: start: 20240829
  3. SUMATRIPTAN SUCCINATE [Suspect]
     Active Substance: SUMATRIPTAN SUCCINATE
     Dosage: UNK, TWO DOSES
     Dates: start: 20240830
  4. SKENAN [Concomitant]
     Active Substance: MORPHINE SULFATE
     Indication: Product used for unknown indication
     Dosage: 10 MG, BID
  5. MORPHINE SULFATE [Concomitant]
     Active Substance: MORPHINE SULFATE
     Indication: Product used for unknown indication
     Dosage: 5 MG,ONE TABLET EVERY FOUR HOURS FOR 8 DAYS
  6. TRACLEER [Concomitant]
     Active Substance: BOSENTAN
     Indication: Product used for unknown indication
     Dosage: 2 DF, QD,62.5
  7. TRACLEER [Concomitant]
     Active Substance: BOSENTAN
     Dosage: UNK,125 X 2

REACTIONS (9)
  - Peripheral artery thrombosis [Not Recovered/Not Resolved]
  - Peripheral ischaemia [Not Recovered/Not Resolved]
  - Cerebral small vessel ischaemic disease [Unknown]
  - Limb discomfort [Unknown]
  - Carpal tunnel syndrome [Unknown]
  - Angiopathy [Unknown]
  - Ulcer [Unknown]
  - Extremity necrosis [Unknown]
  - Dyspnoea [Unknown]

NARRATIVE: CASE EVENT DATE: 20171208
